FAERS Safety Report 7029312-2 (Version None)
Quarter: 2010Q4

REPORT INFORMATION
  Report Type: 
  Country: None (occurrence: None)
  Receive Date: 20101005
  Receipt Date: 20100923
  Transmission Date: 20110411
  Serious: Yes (Hospitalization)
  Sender: FDA-Public Use
  Company Number: DE-WYE-H17207310

PATIENT
  Sex: Female

DRUGS (2)
  1. PANTOPRAZOLE SODIUM [Suspect]
     Indication: DYSPEPSIA
     Route: 048
     Dates: start: 20100601, end: 20100801
  2. DECORTIN [Concomitant]
     Dosage: UNKNOWN

REACTIONS (5)
  - ACUTE HEPATIC FAILURE [None]
  - HEPATITIS TOXIC [None]
  - INFLAMMATION [None]
  - LUNG INFILTRATION [None]
  - RENAL FAILURE ACUTE [None]
